FAERS Safety Report 16315660 (Version 3)
Quarter: 2019Q4

REPORT INFORMATION
  Report Type: Spontaneous
  Country: JP (occurrence: JP)
  Receive Date: 20190515
  Receipt Date: 20191230
  Transmission Date: 20200122
  Serious: Yes (Other)
  Sender: FDA-Public Use
  Company Number: JP-ALLERGAN-1920222US

PATIENT
  Sex: Female

DRUGS (20)
  1. BOTOX [Suspect]
     Active Substance: ONABOTULINUMTOXINA
     Dosage: 200 UNITS, SINGLE
     Route: 030
     Dates: start: 20170509, end: 20170509
  2. FYCOMPA [Concomitant]
     Active Substance: PERAMPANEL
     Indication: PRODUCT USED FOR UNKNOWN INDICATION
     Dosage: 4 MG, QD  BEFORE DINNER
     Route: 065
     Dates: start: 20190528
  3. SENNOSIDES A+B [Concomitant]
     Active Substance: SENNOSIDES A AND B
     Indication: PRODUCT USED FOR UNKNOWN INDICATION
     Dosage: 24 MG, QD BEFORE BEDTIME
     Route: 065
     Dates: start: 20190528
  4. BEOVA [Concomitant]
     Indication: POLLAKIURIA
     Dosage: 50 MG, QD
     Route: 065
     Dates: start: 20190502
  5. BOTOX [Suspect]
     Active Substance: ONABOTULINUMTOXINA
     Indication: MUSCLE SPASMS
     Dosage: 200 UNITS, SINGLE
     Route: 030
     Dates: start: 20190109, end: 20190109
  6. ADALAT [Concomitant]
     Active Substance: NIFEDIPINE
     Indication: PRODUCT USED FOR UNKNOWN INDICATION
     Dosage: 20 MG, BID, AFTER BREAKFAST AND DINNER
     Route: 065
     Dates: start: 20190528
  7. FAMOTIDINE. [Concomitant]
     Active Substance: FAMOTIDINE
     Indication: PRODUCT USED FOR UNKNOWN INDICATION
     Dosage: 10 MG, BID, AFTER BREAKFAST AND DINNER
     Dates: start: 20190528
  8. TRAZENTA [Concomitant]
     Active Substance: LINAGLIPTIN
     Indication: PRODUCT USED FOR UNKNOWN INDICATION
     Dosage: 5 MG, QD AFTER BREAKFAST
     Route: 065
     Dates: start: 20190528
  9. BOTOX [Suspect]
     Active Substance: ONABOTULINUMTOXINA
     Indication: MUSCLE CONTRACTURE
     Dosage: 200 UNITS, SINGLE
     Route: 030
  10. EXCEGRAN [Concomitant]
     Active Substance: ZONISAMIDE
     Indication: PRODUCT USED FOR UNKNOWN INDICATION
     Dosage: 100 MG, QD BEFORE BEDTIME
     Route: 065
     Dates: start: 20190528
  11. LOXONIN [Concomitant]
     Active Substance: LOXOPROFEN SODIUM
     Indication: PRODUCT USED FOR UNKNOWN INDICATION
     Dosage: UNK UNK, QD
     Route: 065
     Dates: start: 20190528
  12. CLARITIN [Concomitant]
     Active Substance: LORATADINE
     Indication: PRODUCT USED FOR UNKNOWN INDICATION
     Dosage: 10 MG, QD AFTER BREAKFAST
     Route: 065
     Dates: start: 20190528
  13. AMARYL [Concomitant]
     Active Substance: GLIMEPIRIDE
     Indication: PRODUCT USED FOR UNKNOWN INDICATION
     Dosage: 0.5 MG, QD AFTER BREAKFAST
     Route: 065
     Dates: start: 20190528
  14. SEIBULE [Concomitant]
     Active Substance: MIGLITOL
     Indication: PRODUCT USED FOR UNKNOWN INDICATION
     Dosage: 50 MG, TID BEFORE EVERY MEAL
     Route: 065
     Dates: start: 20190528
  15. BOTOX [Suspect]
     Active Substance: ONABOTULINUMTOXINA
     Dosage: 200 UNITS, SINGLE
     Route: 030
  16. BOTOX [Suspect]
     Active Substance: ONABOTULINUMTOXINA
     Dosage: 200 UNITS, SINGLE
     Route: 030
     Dates: start: 20180120, end: 20180120
  17. ASPARA-CA [Concomitant]
     Active Substance: CALCIUM ASPARTATE
     Indication: PRODUCT USED FOR UNKNOWN INDICATION
     Dosage: 200 MG, QD 30 MINUTES AFTER BREAKFAST
     Route: 065
     Dates: start: 20190528
  18. LOTRIGA [Concomitant]
     Active Substance: OMEGA-3-ACID ETHYL ESTERS
     Indication: PRODUCT USED FOR UNKNOWN INDICATION
     Dosage: 2 G, BID, AFTER BREAKFAST AND DINNER
     Route: 065
     Dates: start: 20190528
  19. MILICARETT [Concomitant]
     Indication: PRODUCT USED FOR UNKNOWN INDICATION
     Dosage: UNK
     Route: 065
     Dates: start: 20190528
  20. PREDNISOLONE. [Concomitant]
     Active Substance: PREDNISOLONE
     Indication: PRODUCT USED FOR UNKNOWN INDICATION
     Dosage: 10 MG, QD AFTER BREAKFAST
     Route: 065
     Dates: start: 20190528, end: 20190603

REACTIONS (3)
  - Eyelid disorder [Recovered/Resolved]
  - Eyelid ptosis [Recovered/Resolved]
  - Myasthenia gravis [Recovered/Resolved]

NARRATIVE: CASE EVENT DATE: 20190430
